FAERS Safety Report 24578873 (Version 1)
Quarter: 2024Q4

REPORT INFORMATION
  Report Type: Spontaneous
  Country: FR (occurrence: FR)
  Receive Date: 20241105
  Receipt Date: 20241105
  Transmission Date: 20250114
  Serious: Yes (Hospitalization, Other)
  Sender: AUROBINDO
  Company Number: FR-002147023-NVSC2024FR203963

PATIENT
  Age: 72 Year
  Sex: Male

DRUGS (6)
  1. OXALIPLATIN [Suspect]
     Active Substance: OXALIPLATIN
     Indication: Oesophageal adenocarcinoma
     Dosage: 85 MILLIGRAM/SQ. METER, EVERY 0.5 CYCLE(S) DAY 1 AND DAY 15 OF CYCLE OF 4 WEEKS IN PREOPERATIVE PERI
     Route: 042
     Dates: start: 20220812
  2. OXALIPLATIN [Suspect]
     Active Substance: OXALIPLATIN
     Dosage: 85 MILLIGRAM/SQ. METER, EVERY 0.5 CYCLE(S) DAY 1 AND DAY 15 OF CYCLE OF 4 WEEKS IN POSTOPERATIVE PER
     Route: 042
     Dates: end: 20230116
  3. DOCETAXEL [Suspect]
     Active Substance: DOCETAXEL
     Indication: Oesophageal adenocarcinoma
     Dosage: 50 MILLIGRAM/SQ. METER, EVERY DAY 1 AND DAY 15 OF CYCLE OF 4 WEEKS IN PREOPERATIVE PERIOD
     Route: 042
     Dates: start: 20220812
  4. DOCETAXEL [Suspect]
     Active Substance: DOCETAXEL
     Dosage: 50 MILLIGRAM/SQ. METER, EVERY 0.5 CYCLE(S) DAY 1 AND DAY 15 OF CYCLE OF 4 WEEKS IN POSTOPERATIVE PER
     Route: 042
     Dates: end: 20221219
  5. FLUOROURACIL [Suspect]
     Active Substance: FLUOROURACIL
     Indication: Oesophageal adenocarcinoma
     Dosage: 2600 MILLIGRAM/SQ. METER, EVERY 0.5 CYCLE(S) DAY 1 AND DAY 15 OF CYCLE OF 4 WEEKS IN PREOPERATIVE PE
     Route: 042
     Dates: start: 20220812
  6. FLUOROURACIL [Suspect]
     Active Substance: FLUOROURACIL
     Dosage: 2600 MILLIGRAM/SQ. METER, EVERY 0.5 CYCLE(S) DAY 1 AND DAY 15 OF CYCLE OF 4 WEEKS IN POSTOPERATIVE P
     Route: 042
     Dates: end: 20230116

REACTIONS (2)
  - Toxic skin eruption [Not Recovered/Not Resolved]
  - Toxic epidermal necrolysis [Not Recovered/Not Resolved]

NARRATIVE: CASE EVENT DATE: 20230118
